FAERS Safety Report 4428601-5 (Version None)
Quarter: 2004Q3

REPORT INFORMATION
  Report Type: 
  Country: None (occurrence: None)
  Receive Date: 20040818
  Receipt Date: 20040810
  Transmission Date: 20050211
  Serious: Yes (Hospitalization)
  Sender: FDA-Public Use
  Company Number: AU-JNJFOC-20040803520

PATIENT
  Age: 76 Year
  Sex: Female

DRUGS (6)
  1. TRAMADOL HCL [Suspect]
     Route: 065
  2. PERINDOPRIL [Concomitant]
     Dosage: DOSE TAKEN IN THE AM
  3. QUININE SULFATE [Concomitant]
     Dosage: DOSE TAKEN AT NIGHT
  4. RANITIDINE [Concomitant]
     Dosage: DOSE TAKEN AT NIGHT
  5. CALCIUM CARBONATE [Concomitant]
     Dosage: DOSE TAKEN AT NIGHT
  6. RISEDRONATE [Concomitant]

REACTIONS (3)
  - BLOOD OSMOLARITY DECREASED [None]
  - HYPONATRAEMIA [None]
  - INAPPROPRIATE ANTIDIURETIC HORMONE SECRETION [None]
